FAERS Safety Report 6765773-1 (Version None)
Quarter: 2010Q2

REPORT INFORMATION
  Report Type: 
  Country: None (occurrence: None)
  Receive Date: 20100611
  Receipt Date: 20100607
  Transmission Date: 20101027
  Serious: Yes (Death, Disabling, Other)
  Sender: FDA-Public Use
  Company Number: US-ASTRAZENECA-2010SE08266

PATIENT
  Age: 56 Year
  Sex: Male
  Weight: 126 kg

DRUGS (22)
  1. SEROQUEL [Suspect]
     Indication: BIPOLAR DISORDER
     Route: 048
     Dates: start: 20100128
  2. SEROQUEL [Suspect]
     Indication: DEPRESSION
     Route: 048
     Dates: start: 20100128
  3. NORCO [Concomitant]
  4. CLONAZEPAM [Concomitant]
     Route: 048
     Dates: start: 20100126, end: 20100213
  5. MIDODRINE HYDROCHLORIDE [Concomitant]
     Route: 048
     Dates: start: 20100208, end: 20100221
  6. MIDODRINE HYDROCHLORIDE [Concomitant]
     Route: 048
     Dates: start: 20100127, end: 20100208
  7. LEVOFLOXACIN [Concomitant]
     Route: 042
     Dates: start: 20100128, end: 20100217
  8. ZOSYN [Concomitant]
     Route: 042
     Dates: start: 20100127, end: 20100217
  9. VANCOMYCIN [Concomitant]
     Dates: start: 20100203, end: 20100209
  10. MAGNESIUM SULFATE [Concomitant]
     Dates: start: 20100209, end: 20100219
  11. KETOROLAC TROMETHAMINE [Concomitant]
     Dates: start: 20100126, end: 20100126
  12. HYDROMORPHONE HCL [Concomitant]
     Dosage: 0.25-0.5 MG PRN
     Dates: start: 20100214, end: 20100220
  13. HEPARIN [Concomitant]
     Route: 058
     Dates: start: 20100218, end: 20100221
  14. GABAPENTIN [Concomitant]
     Route: 048
     Dates: start: 20100217, end: 20100221
  15. FENTANYL [Concomitant]
     Dates: start: 20100126, end: 20100217
  16. EPOETIN ALFA [Concomitant]
     Dosage: 20000 UNIT
     Route: 057
  17. AMIODARONE HYDROCHLORIDE [Concomitant]
     Dates: start: 20100127, end: 20100221
  18. CALCIUM ACETATE [Concomitant]
     Dates: start: 20100215, end: 20100221
  19. ALBUTEROL [Concomitant]
  20. FAMOTIDINE [Concomitant]
     Dates: start: 20100127, end: 20100221
  21. DOPAMINE HCL [Concomitant]
     Dosage: 800 MG/250 ML DRIP
     Dates: start: 20100216
  22. DOBUTAMINE HCL [Concomitant]
     Dosage: 250 MG/250 ML DRIP
     Dates: start: 20100216

REACTIONS (6)
  - APNOEIC ATTACK [None]
  - DEMENTIA [None]
  - PULSE ABSENT [None]
  - RENAL FAILURE [None]
  - SUDDEN CARDIAC DEATH [None]
  - SURGERY [None]
